FAERS Safety Report 7284945 (Version 13)
Quarter: 2012Q4

REPORT INFORMATION
  Report Type: 
  Country: US (occurrence: US)
  Receive Date: 20091201
  Receipt Date: 20121003
  Transmission Date: 20130627
  Serious: Yes (Hospitalization, Other)
  Sender: FDA-Public Use
  Company Number: US-009507513-2009-190399-NL

PATIENT

DRUGS (4)
  1. NUVARING [Suspect]
     Indication: MENSTRUATION IRREGULAR
     Dosage: CONTINUING: NO
     Dates: start: 20070209, end: 20070224
  2. NUVARING [Suspect]
     Indication: ENDOMETRIOSIS
  3. NUVARING [Suspect]
     Indication: OVARIAN CYST
  4. GLUCOPHAGE [Concomitant]
     Indication: ENDOMETRIOSIS
     Dosage: ALSO USED FOR WEIGHT LOSS
     Dates: start: 200702, end: 20070221

REACTIONS (18)
  - Ovarian cyst ruptured [Recovering/Resolving]
  - Transverse sinus thrombosis [Recovering/Resolving]
  - Venous thrombosis [Unknown]
  - Sinusitis [Unknown]
  - Nasopharyngitis [Recovered/Resolved]
  - Off label use [Unknown]
  - Joint injury [Unknown]
  - Spinal fracture [Unknown]
  - Muscle strain [Unknown]
  - Road traffic accident [Unknown]
  - Laceration [Unknown]
  - Contusion [Unknown]
  - Burns first degree [Unknown]
  - Burns third degree [Unknown]
  - Haematuria [Unknown]
  - Rib fracture [Unknown]
  - Ligament sprain [Unknown]
  - Muscle strain [Unknown]
